FAERS Safety Report 7652154-1 (Version None)
Quarter: 2011Q3

REPORT INFORMATION
  Report Type: 
  Country: None (occurrence: None)
  Receive Date: 20110803
  Receipt Date: 20110722
  Transmission Date: 20111222
  Serious: Yes (Death, Hospitalization, Other)
  Sender: FDA-Public Use
  Company Number: US-BAYER-2011-006267

PATIENT
  Age: 64 Year
  Sex: Male
  Weight: 84.354 kg

DRUGS (50)
  1. TRASYLOL [Suspect]
     Dosage: 4 MILLION UNITS
     Route: 042
     Dates: start: 20070522, end: 20070522
  2. TRASYLOL [Suspect]
     Indication: HEART TRANSPLANT
     Dosage: 200ML CARDIOPUMLMONARY BYPASS PRIME
     Dates: start: 20070523, end: 20070523
  3. TRASYLOL [Suspect]
     Indication: IMPLANTABLE DEFIBRILLATOR INSERTION
  4. LOPRESSOR [Concomitant]
     Dosage: 100 MG, BID
     Route: 048
  5. LASIX [Concomitant]
  6. DIGOXIN [Concomitant]
     Dosage: 0.25 MG, QD
     Route: 048
  7. NORVASC [Concomitant]
     Dosage: 5 MG, QD
     Route: 048
  8. COZAAR [Concomitant]
     Dosage: 50 MG, BID
     Route: 048
  9. TENORMIN [Concomitant]
     Dosage: 100 MG, QD
     Route: 048
  10. VERSED [Concomitant]
     Dosage: UNK
     Route: 042
     Dates: start: 20070522, end: 20070522
  11. HEPARIN [Concomitant]
     Dosage: 4000 UNITS
     Dates: start: 20070522, end: 20070522
  12. ATACAND [Concomitant]
     Dosage: 16 MG, QD
     Route: 048
  13. DOBUTAMINE HCL [Concomitant]
     Dosage: UNK
     Route: 042
     Dates: start: 20070522
  14. LASIX [Concomitant]
     Dosage: 40 MG, QD
     Route: 048
  15. LEVOPHED [Concomitant]
     Dosage: UNK
     Route: 042
     Dates: start: 20070522
  16. MANNITOL [Concomitant]
     Dosage: UNK
     Route: 042
     Dates: start: 20070522, end: 20070522
  17. PLATELETS [Concomitant]
     Dosage: UNK
     Dates: start: 20070507
  18. ZOSYN [Concomitant]
     Dosage: UNK
     Route: 042
     Dates: start: 20070401
  19. LISINOPRIL [Concomitant]
     Dosage: 10 MG, QD
     Route: 048
  20. PREVACID [Concomitant]
     Dosage: 15 MG, QD
     Route: 048
  21. AMIODARONE HCL [Concomitant]
     Dosage: 200 MG, QD
     Route: 048
  22. LANOXIN [Concomitant]
     Dosage: 0.25 MG, QD
     Route: 048
  23. BENADRYL [Concomitant]
     Dosage: UNK
     Route: 042
     Dates: start: 20070522, end: 20070522
  24. VALPROIC ACID [Concomitant]
     Dosage: 500 MG, BID
     Route: 048
  25. TRASYLOL [Suspect]
     Indication: VENTRICULAR ASSIST DEVICE INSERTION
     Dosage: UNK
     Route: 042
     Dates: start: 20060507, end: 20060507
  26. PAXIL [Concomitant]
     Dosage: 30 MG, QD
     Route: 048
  27. HEPARIN [Concomitant]
     Dosage: 10,000 UNITS
     Dates: start: 20070522, end: 20070522
  28. PLAVIX [Concomitant]
     Dosage: 75 MG, QD
     Route: 048
  29. GLUCOPHAGE [Concomitant]
     Dosage: 1000 MG, BID
     Route: 048
  30. PITRESSIN [Concomitant]
     Dosage: UNK
     Route: 042
     Dates: start: 20070522
  31. CRYOPRECIPITATES [Concomitant]
     Dosage: UNK
     Dates: start: 20060507
  32. EPLERENONE [Concomitant]
     Dosage: 12.5 MG, QD
     Route: 048
  33. INSPRA [Concomitant]
     Dosage: 12.5 MG, QD
     Route: 048
  34. ACETYLSALICYLIC ACID SRT [Concomitant]
     Dosage: 325 MG, QD
     Route: 048
  35. HEPARIN [Concomitant]
     Dosage: UNK
  36. COUMADIN [Concomitant]
     Dosage: 7.5 MG, HS
     Route: 048
  37. METHYLPREDNISOLONE ACETATE [Concomitant]
     Dosage: 1 GRAM
     Route: 042
     Dates: start: 20070522, end: 20070522
  38. RED BLOOD CELLS [Concomitant]
     Dosage: UNK
     Dates: start: 20060507
  39. SYNTHROID [Concomitant]
     Dosage: 250 MCG, QD
     Route: 048
  40. LIPITOR [Concomitant]
     Dosage: 40 MG, QD
     Route: 048
  41. TOPROL-XL [Concomitant]
     Dosage: 200 MG, QD
     Route: 048
  42. VECURONIUM BROMIDE [Concomitant]
     Dosage: UNK
     Route: 042
     Dates: start: 20070522, end: 20070522
  43. VYTORIN [Concomitant]
     Dosage: 10/20 DAILY
     Route: 048
  44. HEPARIN [Concomitant]
     Dosage: 9000 UNITS
     Dates: start: 20070522, end: 20070522
  45. DOPAMINE HCL [Concomitant]
     Dosage: UNK
     Route: 042
     Dates: start: 20070522
  46. ATENOLOL [Concomitant]
     Dosage: 100 MG, QD
     Route: 048
  47. POTASSIUM CHLORIDE [Concomitant]
     Dosage: 20 MILLIEQUIVALENTS DAILY
     Route: 048
  48. MILRINONE [Concomitant]
     Dosage: UNK
     Route: 042
     Dates: start: 20070522
  49. MANNITOL [Concomitant]
     Dosage: 12.5 GRAMS
     Route: 042
     Dates: start: 20070522, end: 20070522
  50. PLASMA [Concomitant]

REACTIONS (12)
  - RENAL INJURY [None]
  - STRESS [None]
  - PAIN [None]
  - DEATH [None]
  - MYOCARDIAL INFARCTION [None]
  - RENAL FAILURE [None]
  - EMOTIONAL DISTRESS [None]
  - ANXIETY [None]
  - MULTI-ORGAN FAILURE [None]
  - UNEVALUABLE EVENT [None]
  - FEAR [None]
  - RENAL IMPAIRMENT [None]
